FAERS Safety Report 6544502-0 (Version None)
Quarter: 2010Q1

REPORT INFORMATION
  Report Type: 
  Country: None (occurrence: None)
  Receive Date: 20100121
  Receipt Date: 20100116
  Transmission Date: 20100710
  Serious: No
  Sender: FDA-Public Use
  Company Number: BR-ROCHE-680240

PATIENT
  Sex: Female

DRUGS (1)
  1. ROACUTAN [Suspect]
     Indication: DRUG USE FOR UNKNOWN INDICATION
     Route: 065
     Dates: end: 20100101

REACTIONS (2)
  - NO ADVERSE EVENT [None]
  - PREGNANCY [None]
